FAERS Safety Report 5241529-6 (Version None)
Quarter: 2007Q1

REPORT INFORMATION
  Report Type: 
  Country: None (occurrence: None)
  Receive Date: 20070220
  Receipt Date: 20070209
  Transmission Date: 20070707
  Serious: Yes (Hospitalization)
  Sender: FDA-Public Use
  Company Number: FR-GLAXOSMITHKLINE-B0458553A

PATIENT
  Age: 63 Year
  Sex: Female
  Weight: 45 kg

DRUGS (7)
  1. ZOFRAN [Suspect]
     Dosage: 1UNIT PER DAY
     Route: 042
     Dates: start: 20070104, end: 20070104
  2. PLITICAN [Suspect]
     Dosage: 2UNIT CUMULATIVE DOSE
     Route: 042
     Dates: start: 20070104, end: 20070106
  3. ELVORINE [Suspect]
     Route: 042
     Dates: start: 20070104, end: 20070105
  4. ELOXATIN [Suspect]
     Route: 042
     Dates: start: 20070104
  5. MODURETIC 5-50 [Suspect]
     Dosage: 1TAB PER DAY
     Route: 048
     Dates: start: 20070103, end: 20070116
  6. FLUOROURACIL [Suspect]
     Route: 042
     Dates: start: 20070104, end: 20070105
  7. SOLU-MEDROL [Concomitant]
     Route: 065

REACTIONS (6)
  - ANOREXIA [None]
  - ASTHENIA [None]
  - DIARRHOEA [None]
  - HYPONATRAEMIA [None]
  - MYALGIA [None]
  - NAUSEA [None]
